FAERS Safety Report 15119814 (Version 1)
Quarter: 2018Q3

REPORT INFORMATION
  Report Type: Spontaneous
  Country: US (occurrence: US)
  Receive Date: 20180613
  Receipt Date: 20180613
  Transmission Date: 20181010
  Serious: Yes (Hospitalization)
  Sender: FDA-Public Use
  Company Number: None

PATIENT
  Age: 76 Year
  Sex: Male

DRUGS (1)
  1. PEMBROLIZUMAB. [Suspect]
     Active Substance: PEMBROLIZUMAB
     Route: 042
     Dates: start: 20180302, end: 20180303

REACTIONS (5)
  - Neuropathy peripheral [None]
  - Arthralgia [None]
  - Headache [None]
  - Chills [None]
  - Myalgia [None]

NARRATIVE: CASE EVENT DATE: 20180315
